FAERS Safety Report 4881299-4 (Version None)
Quarter: 2006Q1

REPORT INFORMATION
  Report Type: 
  Country: None (occurrence: None)
  Receive Date: 20060112
  Receipt Date: 20051229
  Transmission Date: 20060701
  Serious: Yes (Hospitalization, Other)
  Sender: FDA-Public Use
  Company Number: HQWYE161703JAN06

PATIENT
  Sex: Female

DRUGS (11)
  1. EFFEXOR XR [Suspect]
     Indication: DEPRESSION
     Dosage: SEE IMAGE
     Route: 064
     Dates: start: 20050101, end: 20050101
  2. EFFEXOR XR [Suspect]
     Indication: POST-TRAUMATIC STRESS DISORDER
     Dosage: SEE IMAGE
     Route: 064
     Dates: start: 20050101, end: 20050101
  3. EFFEXOR XR [Suspect]
     Indication: DEPRESSION
     Dosage: SEE IMAGE
     Route: 064
     Dates: start: 20050101, end: 20050101
  4. EFFEXOR XR [Suspect]
     Indication: POST-TRAUMATIC STRESS DISORDER
     Dosage: SEE IMAGE
     Route: 064
     Dates: start: 20050101, end: 20050101
  5. EFFEXOR XR [Suspect]
     Indication: DEPRESSION
     Dosage: SEE IMAGE
     Route: 064
     Dates: start: 20050501, end: 20050101
  6. EFFEXOR XR [Suspect]
     Indication: POST-TRAUMATIC STRESS DISORDER
     Dosage: SEE IMAGE
     Route: 064
     Dates: start: 20050501, end: 20050101
  7. EFFEXOR XR [Suspect]
     Indication: DEPRESSION
     Dosage: SEE IMAGE
     Route: 064
     Dates: start: 20021201, end: 20050501
  8. EFFEXOR XR [Suspect]
     Indication: POST-TRAUMATIC STRESS DISORDER
     Dosage: SEE IMAGE
     Route: 064
     Dates: start: 20021201, end: 20050501
  9. EFFEXOR XR [Suspect]
     Indication: DEPRESSION
     Dosage: SEE IMAGE
     Route: 064
     Dates: start: 20050101, end: 20051226
  10. EFFEXOR XR [Suspect]
     Indication: POST-TRAUMATIC STRESS DISORDER
     Dosage: SEE IMAGE
     Route: 064
     Dates: start: 20050101, end: 20051226
  11. WELLBUTRIN XL [Suspect]
     Dosage: 150 MG 2X PER 1 DAY, TRANSPLACENTAL
     Route: 064
     Dates: end: 20051226

REACTIONS (5)
  - CONGENITAL INFECTION [None]
  - CONGENITAL INTESTINAL MALFORMATION [None]
  - DRUG EXPOSURE DURING PREGNANCY [None]
  - INFANTILE APNOEIC ATTACK [None]
  - PREMATURE BABY [None]
